FAERS Safety Report 17299258 (Version 2)
Quarter: 2020Q1

REPORT INFORMATION
  Report Type: Report from Study
  Country: US (occurrence: US)
  Receive Date: 20200121
  Receipt Date: 20200323
  Transmission Date: 20200409
  Serious: Yes (Other)
  Sender: FDA-Public Use
  Company Number: US-OTSUKA-2020_001603

PATIENT
  Age: 87 Year
  Sex: Female

DRUGS (4)
  1. SEROQUEL [Concomitant]
     Active Substance: QUETIAPINE FUMARATE
     Indication: MAJOR DEPRESSION
     Dosage: 75 MG, QD
     Route: 065
     Dates: start: 20190219
  2. DEXTROMETHORPHAN/QUINIDINE [Suspect]
     Active Substance: DEXTROMETHORPHAN HYDROBROMIDE\QUINIDINE SULFATE
     Indication: AFFECT LABILITY
     Dosage: 1 DF, QD
     Route: 065
     Dates: start: 20190312, end: 20191012
  3. SERTRALINE [Concomitant]
     Active Substance: SERTRALINE HYDROCHLORIDE
     Indication: MAJOR DEPRESSION
     Dosage: 100 MG, QD
     Route: 065
     Dates: start: 20190219
  4. ATIVAN [Concomitant]
     Active Substance: LORAZEPAM
     Indication: ANXIETY
     Dosage: 1 MG, QD
     Route: 065
     Dates: start: 20160219

REACTIONS (5)
  - Product use issue [Unknown]
  - Loss of personal independence in daily activities [Unknown]
  - Hallucination [Unknown]
  - Aggression [Recovering/Resolving]
  - Coordination abnormal [Unknown]

NARRATIVE: CASE EVENT DATE: 20190312
